FAERS Safety Report 7557450-4 (Version None)
Quarter: 2011Q2

REPORT INFORMATION
  Report Type: 
  Country: None (occurrence: None)
  Receive Date: 20110620
  Receipt Date: 20110606
  Transmission Date: 20111010
  Serious: Yes (Other)
  Sender: FDA-Public Use
  Company Number: JP-ROCHE-763081

PATIENT
  Age: 60 Year
  Sex: Male

DRUGS (3)
  1. RANIBIZUMAB [Suspect]
     Indication: MYOPIA
     Dosage: 0.05 ML, UNKNOWN
     Route: 031
     Dates: start: 20090615
  2. BEVACIZUMAB [Suspect]
     Indication: CHOROIDAL NEOVASCULARISATION
     Dosage: DOSAGE IS UNCERTAIN.
     Route: 031
     Dates: start: 20090220
  3. VISUDYNE [Suspect]
     Indication: MYOPIA
     Dosage: 1 DF, UNK
     Route: 042
     Dates: start: 20090220

REACTIONS (1)
  - MACULAR HOLE [None]
